FAERS Safety Report 17091449 (Version 1)
Quarter: 2019Q4

REPORT INFORMATION
  Report Type: Spontaneous
  Country: US (occurrence: US)
  Receive Date: 20191129
  Receipt Date: 20191129
  Transmission Date: 20200122
  Serious: No
  Sender: FDA-Public Use
  Company Number: US-ASTRAZENECA-2019SF68804

PATIENT
  Age: 70 Year
  Sex: Female

DRUGS (1)
  1. PRILOSEC OTC [Suspect]
     Active Substance: OMEPRAZOLE MAGNESIUM
     Route: 048

REACTIONS (3)
  - Product blister packaging issue [Unknown]
  - Pain in extremity [Not Recovered/Not Resolved]
  - Product package associated injury [Not Recovered/Not Resolved]

NARRATIVE: CASE EVENT DATE: 20191106
